FAERS Safety Report 9685983 (Version 4)
Quarter: 2016Q3

REPORT INFORMATION
  Report Type: Report from Study
  Country: JP (occurrence: JP)
  Receive Date: 20131113
  Receipt Date: 20160819
  Transmission Date: 20161109
  Serious: Yes (Other)
  Sender: FDA-Public Use
  Company Number: JP-ROCHE-1302804

PATIENT
  Age: 66 Year
  Sex: Female

DRUGS (2)
  1. ALTEPLASE [Suspect]
     Active Substance: ALTEPLASE
     Dosage: 90 % OF 0.6 MG/KG AS CONTINUOUS INFUSION OF THE REMAINDER OVER 1 H (NOT EXCEEDING 60 MG)
     Route: 041
  2. ALTEPLASE [Suspect]
     Active Substance: ALTEPLASE
     Indication: ISCHAEMIC STROKE
     Dosage: 10% OF 0.6 MG/KG AS BOLUS, FOLLOWED BY CONTINUOUS INFUSION OF THE REMAINDER OVER 1 H (NOT EXCEEDING
     Route: 040

REACTIONS (2)
  - Haemorrhagic transformation stroke [Unknown]
  - Stroke in evolution [Unknown]
